FAERS Safety Report 21792733 (Version 2)
Quarter: 2022Q4

REPORT INFORMATION
  Report Type: Spontaneous
  Country: US (occurrence: US)
  Receive Date: 20221229
  Receipt Date: 20221230
  Transmission Date: 20230112
  Serious: Yes (Other)
  Sender: FDA-Public Use
  Company Number: US-ABBVIE-4252265

PATIENT
  Sex: Male

DRUGS (3)
  1. DEPAKOTE ER [Suspect]
     Active Substance: DIVALPROEX SODIUM
     Indication: Epilepsy
     Dosage: 250 MILLIGRAM, FORM STRENGTH: 250 MG
     Route: 048
     Dates: start: 2000
  2. DEPAKOTE ER [Suspect]
     Active Substance: DIVALPROEX SODIUM
     Indication: Epilepsy
     Dosage: 500 MILLIGRAM, FORM STRENGTH: 250 MG
     Route: 048
     Dates: start: 2000
  3. DEPAKOTE ER [Suspect]
     Active Substance: DIVALPROEX SODIUM
     Indication: Epilepsy
     Route: 048

REACTIONS (10)
  - Cerebral palsy [Not Recovered/Not Resolved]
  - Osteoporosis [Not Recovered/Not Resolved]
  - Seizure [Not Recovered/Not Resolved]
  - Scoliosis [Not Recovered/Not Resolved]
  - Unevaluable event [Not Recovered/Not Resolved]
  - Blood urine present [Not Recovered/Not Resolved]
  - Hip fracture [Recovering/Resolving]
  - Dysstasia [Not Recovered/Not Resolved]
  - Vitamin D decreased [Unknown]
  - Product physical issue [Unknown]

NARRATIVE: CASE EVENT DATE: 20060101
